FAERS Safety Report 6455878-7 (Version None)
Quarter: 2009Q4

REPORT INFORMATION
  Report Type: 
  Country: None (occurrence: None)
  Receive Date: 20091119
  Receipt Date: 20091106
  Transmission Date: 20100525
  Serious: Yes (Death)
  Sender: FDA-Public Use
  Company Number: 432245

PATIENT
  Age: 67 Year
  Sex: Male

DRUGS (15)
  1. VANCOMYCIN [Suspect]
     Indication: URINARY TRACT INFECTION
     Dosage: 1 G
     Dates: start: 20091016, end: 20091018
  2. ENOXAPARIN SODIUM [Suspect]
     Indication: ARRHYTHMIA
     Dosage: 120 MG
  3. ENOXAPARIN SODIUM [Suspect]
     Indication: TRANSIENT ISCHAEMIC ATTACK
     Dosage: 120 MG
  4. (ATORVASTATIN) [Concomitant]
  5. CYCLOPHOSPHAMIDE [Concomitant]
  6. DEXAMETHASONE TAB [Concomitant]
  7. DEXRAZOXANE [Concomitant]
  8. (DOXORUBICIN) [Concomitant]
  9. FINASTERIDE [Concomitant]
  10. FLECAINIDE ACETATE [Concomitant]
  11. (METOPROLOL) [Concomitant]
  12. (OMEPRAZOLE) [Concomitant]
  13. OXYBUTYNIN CHLORIDE [Concomitant]
  14. PRO-BANTHINE [Concomitant]
  15. (RITUXIMAB) [Concomitant]

REACTIONS (4)
  - BRAIN STEM HAEMORRHAGE [None]
  - CEREBROVASCULAR ACCIDENT [None]
  - PLATELET COUNT DECREASED [None]
  - URINARY TRACT INFECTION [None]
